FAERS Safety Report 15964138 (Version 1)
Quarter: 2019Q1

REPORT INFORMATION
  Report Type: Spontaneous
  Country: RO (occurrence: RO)
  Receive Date: 20190214
  Receipt Date: 20190214
  Transmission Date: 20190417
  Serious: Yes (Hospitalization)
  Sender: FDA-Public Use
  Company Number: RO-MYLANLABS-2019M1013310

PATIENT
  Age: 59 Year
  Sex: Male
  Weight: 134 kg

DRUGS (8)
  1. LISPRO INSULIN [Concomitant]
     Active Substance: INSULIN LISPRO
     Dosage: UNK, QD (60 U/DAY)
     Dates: start: 2014
  2. INSULIN GLARGINE [Concomitant]
     Active Substance: INSULIN GLARGINE
     Dosage: UNK, QD (64 U/DAY, WITH TITRATION OF DOSES BASED ON GLYCEMIC VALUES))
     Dates: start: 2014
  3. OMEGA-3 FATTY ACIDS [Suspect]
     Active Substance: OMEGA-3 FATTY ACIDS
     Indication: HYPERTRIGLYCERIDAEMIA
     Dosage: UNK
  4. BETAXOLOL HYDROCHLORIDE. [Concomitant]
     Active Substance: BETAXOLOL HYDROCHLORIDE
     Dosage: 30 MILLIGRAM, QD
  5. LEVOTHYROXINUM [Concomitant]
     Dosage: 200 MICROGRAM, QD
  6. FENOFIBRATE. [Suspect]
     Active Substance: FENOFIBRATE
     Indication: HYPERTRIGLYCERIDAEMIA
     Dosage: 145 MILLIGRAM, QD
  7. ATORVASTATIN [Suspect]
     Active Substance: ATORVASTATIN
     Indication: HYPERTRIGLYCERIDAEMIA
     Dosage: 40 MILLIGRAM, QD (MAXIMUM TOLERATED DOSE)
  8. IRBESARTANUM [Concomitant]
     Dosage: 300 MILLIGRAM, QD

REACTIONS (1)
  - Drug ineffective [Recovered/Resolved]
